FAERS Safety Report 13946127 (Version 2)
Quarter: 2020Q3

REPORT INFORMATION
  Report Type: Report from Study
  Country: US (occurrence: US)
  Receive Date: 20170907
  Receipt Date: 20200917
  Transmission Date: 20201102
  Serious: Yes (Hospitalization)
  Sender: FDA-Public Use
  Company Number: US-EISAI MEDICAL RESEARCH-EC-2017-029141

PATIENT
  Age: 67 Year
  Sex: Male

DRUGS (13)
  1. LENVIMA [Suspect]
     Active Substance: LENVATINIB
     Dosage: 2 PILL (DOSE NOT PROVIDED)
     Route: 048
     Dates: start: 2019, end: 201912
  2. LENVIMA [Suspect]
     Active Substance: LENVATINIB
     Indication: THYROID CANCER
     Route: 048
     Dates: start: 20170620, end: 201708
  3. LENVIMA [Suspect]
     Active Substance: LENVATINIB
     Dosage: 1 PILL (DOSE NOT PROVIDED)
     Route: 048
     Dates: start: 2019, end: 2019
  4. LENVIMA [Suspect]
     Active Substance: LENVATINIB
     Route: 048
     Dates: start: 20191229, end: 202008
  5. FLUVIRIN NOS [Concomitant]
     Active Substance: INFLUENZA VIRUS VACCINE
  6. KENALOG [Concomitant]
     Active Substance: TRIAMCINOLONE ACETONIDE
  7. GARLIC. [Concomitant]
     Active Substance: GARLIC
  8. ASPIRIN. [Concomitant]
     Active Substance: ASPIRIN
  9. LENVIMA [Suspect]
     Active Substance: LENVATINIB
     Route: 048
     Dates: start: 201708, end: 2019
  10. LENVIMA [Suspect]
     Active Substance: LENVATINIB
     Route: 048
     Dates: start: 2019, end: 2019
  11. ALLOPURINOL. [Concomitant]
     Active Substance: ALLOPURINOL
  12. ADAVIR DISKUS [Concomitant]
  13. FLUTICASONE?SALMETEROL [Concomitant]

REACTIONS (15)
  - Hunger [Unknown]
  - Gastrointestinal haemorrhage [Unknown]
  - Vomiting [Unknown]
  - Gastroenteritis viral [Not Recovered/Not Resolved]
  - Labyrinthitis [Unknown]
  - Gastric ulcer [Unknown]
  - Blood pressure decreased [Unknown]
  - Sinusitis [Unknown]
  - Peripheral swelling [Unknown]
  - Fatigue [Unknown]
  - Dehydration [Recovered/Resolved]
  - Diarrhoea [Unknown]
  - Abdominal discomfort [Not Recovered/Not Resolved]
  - Increased appetite [Unknown]
  - Blood pressure increased [Unknown]

NARRATIVE: CASE EVENT DATE: 2017
